FAERS Safety Report 6706346-6 (Version None)
Quarter: 2010Q2

REPORT INFORMATION
  Report Type: 
  Country: None (occurrence: None)
  Receive Date: 20100423
  Receipt Date: 20091215
  Transmission Date: 20101027
  Serious: No
  Sender: FDA-Public Use
  Company Number: ALL1-2009-04051

PATIENT
  Age: 28 Year
  Sex: Male
  Weight: 99.8 kg

DRUGS (9)
  1. VYVANSE [Suspect]
     Indication: ATTENTION DEFICIT/HYPERACTIVITY DISORDER
     Dosage: 70 MG, 1X/DAY:QD, ORAL, MG, 1X/DAY:QD, ORAL
     Route: 048
     Dates: start: 20091001
  2. PROZAC [Concomitant]
  3. SYNTHROID [Concomitant]
  4. OXYCODONE HCL [Concomitant]
  5. BENADRYL [Concomitant]
  6. VALIUM [Concomitant]
  7. ALEVE [Concomitant]
  8. IBUPROFEN [Concomitant]
  9. VITAMINS NOS (VITAMINS NOS) [Concomitant]

REACTIONS (1)
  - DRUG SCREEN POSITIVE [None]
